FAERS Safety Report 4971450-X (Version None)
Quarter: 2006Q2

REPORT INFORMATION
  Report Type: 
  Country: None (occurrence: None)
  Receive Date: 20060413
  Receipt Date: 20060201
  Transmission Date: 20061013
  Serious: Yes (Other)
  Sender: FDA-Public Use
  Company Number: 2006UW01739

PATIENT
  Sex: Male

DRUGS (4)
  1. ZD2171 [Suspect]
     Indication: NON-SMALL CELL LUNG CANCER
     Route: 048
     Dates: start: 20051109, end: 20051128
  2. ZD2171 [Suspect]
     Route: 048
     Dates: start: 20051130, end: 20051212
  3. ZD2171 [Suspect]
     Route: 048
     Dates: start: 20051214, end: 20060131
  4. PEMETREXED [Suspect]
     Indication: NON-SMALL CELL LUNG CANCER
     Dates: start: 20051107

REACTIONS (1)
  - DEMYELINATION [None]
